FAERS Safety Report 4313098-6 (Version None)
Quarter: 2004Q1

REPORT INFORMATION
  Report Type: 
  Country: None (occurrence: None)
  Receive Date: 20040303
  Receipt Date: 19970430
  Transmission Date: 20041129
  Serious: Yes (Death, Hospitalization)
  Sender: FDA-Public Use
  Company Number: CL-199600013

PATIENT
  Age: 42 Year
  Sex: Female
  Weight: 126.5 kg

DRUGS (12)
  1. INFLIXIMAB (INFLIXIMAB, RECOMBINANT) LYOPHILIZED POWDER [Suspect]
     Indication: RHEUMATOID ARTHRITIS
     Dosage: SEE IMAGE
     Route: 042
     Dates: start: 19950728
  2. INFLIXIMAB (INFLIXIMAB, RECOMBINANT) LYOPHILIZED POWDER [Suspect]
     Indication: RHEUMATOID ARTHRITIS
     Dosage: SEE IMAGE
     Route: 042
     Dates: start: 19951103
  3. METHOTREXATE [Concomitant]
  4. FOLIC ACID [Concomitant]
  5. PREDNISONE [Concomitant]
  6. DARVOCET-N 100 [Concomitant]
  7. MULTIVITAMIN (MULTIVITAMINS) [Concomitant]
  8. PROCARDIA [Concomitant]
  9. EC-ASA (ACETYLSALICYLIC ACID) [Concomitant]
  10. OXYCODONE (OXYCODONE) [Concomitant]
  11. AMARYL [Concomitant]
  12. COUMADIN [Concomitant]

REACTIONS (46)
  - ANTINUCLEAR ANTIBODY POSITIVE [None]
  - AREFLEXIA [None]
  - ARTHRITIS [None]
  - BRADYARRHYTHMIA [None]
  - BRAIN DEATH [None]
  - BRAIN OEDEMA [None]
  - CARDIAC ARREST [None]
  - CARDIAC TAMPONADE [None]
  - CARDIOMEGALY [None]
  - CEREBRAL ISCHAEMIA [None]
  - CHEST X-RAY ABNORMAL [None]
  - CORNEAL REFLEX DECREASED [None]
  - DRUG INEFFECTIVE [None]
  - DYSAESTHESIA [None]
  - DYSPHAGIA [None]
  - DYSPNOEA EXERTIONAL [None]
  - ELECTROCARDIOGRAM ST SEGMENT ELEVATION [None]
  - HILAR LYMPHADENOPATHY [None]
  - HYPERHIDROSIS [None]
  - HYPERTENSION [None]
  - MYOCARDIAL INFARCTION [None]
  - NIGHT SWEATS [None]
  - OBSTRUCTIVE AIRWAYS DISORDER [None]
  - PAIN IN EXTREMITY [None]
  - PERICARDIAL EFFUSION [None]
  - PERICARDIAL HAEMORRHAGE [None]
  - PERICARDIAL RUB [None]
  - PERICARDITIS [None]
  - PERIPHERAL ISCHAEMIA [None]
  - PLASMINOGEN INCREASED [None]
  - PLATELET COUNT INCREASED [None]
  - PLEURAL EFFUSION [None]
  - PLEURITIC PAIN [None]
  - PNEUMONIA [None]
  - PROTHROMBIN TIME PROLONGED [None]
  - PULMONARY EMBOLISM [None]
  - RENAL FAILURE [None]
  - SARCOIDOSIS [None]
  - SKIN DISCOLOURATION [None]
  - SUBARACHNOID HAEMORRHAGE [None]
  - SUPRAVENTRICULAR TACHYCARDIA [None]
  - SYSTEMIC LUPUS ERYTHEMATOSUS [None]
  - TACHYPNOEA [None]
  - UNRESPONSIVE TO PAIN STIMULI [None]
  - VASOSPASM [None]
  - WHITE BLOOD CELL COUNT INCREASED [None]
